FAERS Safety Report 4706201-7 (Version None)
Quarter: 2005Q2

REPORT INFORMATION
  Report Type: 
  Country: None (occurrence: None)
  Receive Date: 20050629
  Receipt Date: 20050622
  Transmission Date: 20051028
  Serious: Yes (Other)
  Sender: FDA-Public Use
  Company Number: 200512452BCC

PATIENT
  Age: 71 Year
  Sex: Female
  Weight: 58.9676 kg

DRUGS (6)
  1. ASPIRIN [Suspect]
     Indication: PAIN
     Dosage: 325 MG, QD; ORAL (SEE IMAGE)
     Route: 048
     Dates: start: 20040201
  2. ASPIRIN [Suspect]
     Indication: SLEEP DISORDER THERAPY
     Dosage: 325 MG, QD; ORAL (SEE IMAGE)
     Route: 048
     Dates: start: 20040201
  3. ACETYLSALICYLIC ACID SRT [Suspect]
     Indication: PAIN
  4. FOSAMAX [Concomitant]
  5. CALCIUM GLUCONATE [Concomitant]
  6. MULTIVITAMIN [Concomitant]

REACTIONS (2)
  - CONVULSION [None]
  - TONGUE BITING [None]
